FAERS Safety Report 20239126 (Version 2)
Quarter: 2022Q1

REPORT INFORMATION
  Report Type: Report from Study
  Country: JP (occurrence: JP)
  Receive Date: 20211228
  Receipt Date: 20220104
  Transmission Date: 20220424
  Serious: Yes (Hospitalization)
  Sender: FDA-Public Use
  Company Number: JP-Eisai-202110115_BOLD-LF_C_1

PATIENT
  Age: 53 Year
  Sex: Female
  Weight: 94 kg

DRUGS (11)
  1. ERIBULIN [Suspect]
     Active Substance: ERIBULIN
     Indication: Breast cancer
     Route: 042
     Dates: start: 20211029, end: 202112
  2. ERIBULIN [Suspect]
     Active Substance: ERIBULIN
     Dosage: DOSE REDUCED (UNKNOWN DOSE)
     Route: 042
     Dates: start: 202112
  3. OXYCODONE [Concomitant]
     Active Substance: OXYCODONE
     Indication: Cancer pain
     Route: 048
     Dates: start: 20210204
  4. LOXOPROFEN [Concomitant]
     Active Substance: LOXOPROFEN
     Indication: Cancer pain
     Route: 048
     Dates: start: 2010
  5. REBAMIPIDE [Concomitant]
     Active Substance: REBAMIPIDE
     Indication: Cancer pain
     Route: 048
     Dates: start: 2010
  6. NEXIUM [Concomitant]
     Active Substance: ESOMEPRAZOLE MAGNESIUM
     Indication: Gastritis prophylaxis
     Route: 048
     Dates: start: 20210803
  7. CALCIUM CARBONATE\CHOLECALCIFEROL\MAGNESIUM CARBONATE [Concomitant]
     Active Substance: CALCIUM CARBONATE\CHOLECALCIFEROL\MAGNESIUM CARBONATE
     Indication: Prophylaxis
     Route: 048
     Dates: start: 20210803
  8. INSULIN GLARGINE [Concomitant]
     Active Substance: INSULIN GLARGINE
     Indication: Diabetes mellitus
     Route: 058
     Dates: start: 20211112
  9. NOVORAPID [Concomitant]
     Active Substance: INSULIN ASPART
     Indication: Diabetes mellitus
     Route: 058
     Dates: start: 20211203
  10. OXINORM [Concomitant]
     Indication: Cancer pain
     Route: 048
     Dates: start: 20210129
  11. LINAGLIPTIN [Concomitant]
     Active Substance: LINAGLIPTIN
     Indication: Diabetes mellitus
     Route: 048
     Dates: start: 2019

REACTIONS (1)
  - Febrile neutropenia [Recovered/Resolved]

NARRATIVE: CASE EVENT DATE: 20211221
